FAERS Safety Report 7710333-9 (Version None)
Quarter: 2011Q3

REPORT INFORMATION
  Report Type: 
  Country: None (occurrence: None)
  Receive Date: 20110825
  Receipt Date: 20110823
  Transmission Date: 20111222
  Serious: Yes (Other)
  Sender: FDA-Public Use
  Company Number: US-PFIZER INC-2011196154

PATIENT

DRUGS (1)
  1. LIPITOR [Suspect]

REACTIONS (2)
  - MUSCLE INJURY [None]
  - NERVE INJURY [None]
